FAERS Safety Report 12802635 (Version 1)
Quarter: 2016Q3

REPORT INFORMATION
  Report Type: Spontaneous
  Country: US (occurrence: US)
  Receive Date: 20160930
  Receipt Date: 20160930
  Transmission Date: 20161109
  Serious: Yes (Other)
  Sender: FDA-Public Use
  Company Number: None

PATIENT
  Age: 43 Year
  Sex: Female
  Weight: 86.85 kg

DRUGS (2)
  1. PAROXETINE. [Concomitant]
     Active Substance: PAROXETINE
  2. JUBLIA [Suspect]
     Active Substance: EFINACONAZOLE
     Indication: ONYCHOMYCOSIS
     Route: 061
     Dates: start: 20160820, end: 20160920

REACTIONS (3)
  - Breast tenderness [None]
  - Breast swelling [None]
  - Lymphadenopathy [None]

NARRATIVE: CASE EVENT DATE: 20160916
